FAERS Safety Report 12272935 (Version 1)
Quarter: 2016Q2

REPORT INFORMATION
  Report Type: Spontaneous
  Country: IT (occurrence: IT)
  Receive Date: 20160415
  Receipt Date: 20160415
  Transmission Date: 20160815
  Serious: Yes (Other)
  Sender: FDA-Public Use
  Company Number: PHHY2016IT046228

PATIENT
  Age: 61 Year
  Sex: Female

DRUGS (4)
  1. ERTAPENEM [Suspect]
     Active Substance: ERTAPENEM
     Indication: ANTI-INFECTIVE THERAPY
     Dosage: 500 MG, QD
     Route: 041
  2. MEROPENEM. [Suspect]
     Active Substance: MEROPENEM
     Dosage: 2 G, Q12H
     Route: 041
  3. TACROLIMUS. [Suspect]
     Active Substance: TACROLIMUS
     Indication: IMMUNOSUPPRESSANT DRUG THERAPY
     Route: 065
  4. MEROPENEM. [Suspect]
     Active Substance: MEROPENEM
     Indication: ANTI-INFECTIVE THERAPY
     Dosage: 1 G, Q12H
     Route: 065

REACTIONS (5)
  - Drug resistance [Unknown]
  - Cytomegalovirus viraemia [Unknown]
  - Escherichia infection [Unknown]
  - Stenotrophomonas infection [Unknown]
  - Pneumonia [Unknown]
